FAERS Safety Report 23782965 (Version 1)
Quarter: 2024Q2

REPORT INFORMATION
  Report Type: Spontaneous
  Country: US (occurrence: None)
  Receive Date: 20240424
  Receipt Date: 20240424
  Transmission Date: 20240715
  Serious: No
  Sender: FDA-Public Use
  Company Number: None

PATIENT
  Age: 81 Year
  Sex: Female
  Weight: 43.65 kg

DRUGS (7)
  1. ERTAPENEM SODIUM [Suspect]
     Active Substance: ERTAPENEM SODIUM
     Indication: Klebsiella infection
     Dosage: 1  IV  DAILY INTRAVENOUS
     Route: 042
     Dates: start: 20240126, end: 20240205
  2. Caribdopa/Levadopa [Concomitant]
  3. MIRTAZAPINE [Concomitant]
     Active Substance: MIRTAZAPINE
  4. MIDODRINE [Concomitant]
     Active Substance: MIDODRINE
  5. HYDRALAZINE [Concomitant]
     Active Substance: HYDRALAZINE HYDROCHLORIDE
  6. LORAZEPAM [Concomitant]
     Active Substance: LORAZEPAM
  7. DILTIAZEM [Concomitant]
     Active Substance: DILTIAZEM

REACTIONS (5)
  - Aggression [None]
  - Agitation [None]
  - Confusional state [None]
  - Disorientation [None]
  - Insomnia [None]

NARRATIVE: CASE EVENT DATE: 20240128
